FAERS Safety Report 7912312-5 (Version None)
Quarter: 2011Q4

REPORT INFORMATION
  Report Type: 
  Country: None (occurrence: None)
  Receive Date: 20111114
  Receipt Date: 20110730
  Transmission Date: 20120403
  Serious: No
  Sender: FDA-Public Use
  Company Number: US-BAYER-2011-070085

PATIENT
  Sex: Male

DRUGS (2)
  1. ALEVE (CAPLET) [Suspect]
     Indication: TOOTHACHE
     Dosage: 6 DF, ONCE
     Route: 048
     Dates: start: 20110730
  2. ASPIRIN [Concomitant]
     Dosage: 4 DF, ONCE
     Route: 048
     Dates: start: 20110730

REACTIONS (1)
  - FEELING ABNORMAL [None]
